FAERS Safety Report 22522411 (Version 1)
Quarter: 2023Q2

REPORT INFORMATION
  Report Type: Spontaneous
  Country: KR (occurrence: KR)
  Receive Date: 20230605
  Receipt Date: 20230605
  Transmission Date: 20230722
  Serious: Yes (Death, Hospitalization)
  Sender: FDA-Public Use
  Company Number: KR-ORGANON-O2306KOR000065

PATIENT
  Age: 79 Year
  Sex: Female
  Weight: 79 kg

DRUGS (5)
  1. HYDROCHLOROTHIAZIDE\LOSARTAN POTASSIUM [Suspect]
     Active Substance: HYDROCHLOROTHIAZIDE\LOSARTAN POTASSIUM
     Dosage: 1 FORMULATION, FILM COATED TABLET
     Route: 048
     Dates: start: 20171023, end: 20171214
  2. NAPROXEN [Concomitant]
     Active Substance: NAPROXEN
     Dosage: 2 FORMULATION, UNCOATED TABLET
     Route: 048
     Dates: end: 20190120
  3. PANTOPRAZOLE SODIUM [Concomitant]
     Active Substance: PANTOPRAZOLE SODIUM
     Dosage: 1 FORMULATION
     Route: 048
     Dates: end: 20190101
  4. LEVOTHYROXINE SODIUM [Concomitant]
     Active Substance: LEVOTHYROXINE SODIUM
     Dosage: 15 MICROGRAM, UNCOATED TABLET
     Route: 048
     Dates: end: 20190125
  5. LEVOTHYROXINE SODIUM [Concomitant]
     Active Substance: LEVOTHYROXINE SODIUM
     Dosage: 15 MICROGRAM, UNCOATED TABLET
     Route: 048
     Dates: end: 20190125

REACTIONS (2)
  - Pelvic pain [Fatal]
  - Dyspnoea [Fatal]

NARRATIVE: CASE EVENT DATE: 20181114
